FAERS Safety Report 7633320-8 (Version None)
Quarter: 2011Q3

REPORT INFORMATION
  Report Type: 
  Country: None (occurrence: None)
  Receive Date: 20110725
  Receipt Date: 20100623
  Transmission Date: 20111222
  Serious: No
  Sender: FDA-Public Use
  Company Number: US-BRISTOL-MYERS SQUIBB COMPANY-15163330

PATIENT
  Sex: Male

DRUGS (2)
  1. SPRYCEL [Suspect]
  2. GLEEVEC [Concomitant]

REACTIONS (1)
  - PLEURAL EFFUSION [None]
